FAERS Safety Report 17470711 (Version 1)
Quarter: 2020Q1

REPORT INFORMATION
  Report Type: Spontaneous
  Country: NZ (occurrence: NZ)
  Receive Date: 20200228
  Receipt Date: 20200228
  Transmission Date: 20200409
  Serious: Yes (Hospitalization, Other)
  Sender: FDA-Public Use
  Company Number: NZ-009507513-2002NZL003490

PATIENT
  Sex: Female

DRUGS (3)
  1. SINEMET [Suspect]
     Active Substance: CARBIDOPA\LEVODOPA
     Indication: PARKINSON^S DISEASE
     Dosage: UNK
     Route: 048
     Dates: start: 2015
  2. KINSON [Suspect]
     Active Substance: CARBIDOPA\LEVODOPA
     Indication: PARKINSON^S DISEASE
  3. MORPHINE [Concomitant]
     Active Substance: MORPHINE
     Dosage: FORMULATION: PUMP

REACTIONS (4)
  - Product availability issue [Unknown]
  - Blood pressure decreased [Not Recovered/Not Resolved]
  - Adverse event [Not Recovered/Not Resolved]
  - Parkinson^s disease [Unknown]

NARRATIVE: CASE EVENT DATE: 2015
